FAERS Safety Report 9187530 (Version 12)
Quarter: 2014Q1

REPORT INFORMATION
  Report Type: Spontaneous
  Country: US (occurrence: US)
  Receive Date: 20130325
  Receipt Date: 20140218
  Transmission Date: 20141002
  Serious: Yes (Hospitalization, Other)
  Sender: FDA-Public Use
  Company Number: US-JNJFOC-20130311460

PATIENT
  Age: 33 Year
  Sex: Female
  Weight: 72.58 kg

DRUGS (5)
  1. TYLENOL [Suspect]
     Route: 048
  2. TYLENOL [Suspect]
     Indication: PRODUCT USED FOR UNKNOWN INDICATION
     Route: 048
  3. TYLENOL PM [Suspect]
     Indication: INSOMNIA
     Dosage: 2 TO 4 TABLETS
     Route: 048
     Dates: start: 20100901, end: 20100912
  4. TYLENOL PM [Suspect]
     Indication: SLEEP DISORDER THERAPY
     Dosage: 2 TO 4 TABLETS
     Route: 048
     Dates: start: 20100901, end: 20100912
  5. ALCOHOL [Suspect]
     Indication: PRODUCT USED FOR UNKNOWN INDICATION
     Route: 048

REACTIONS (7)
  - Hepatic encephalopathy [Recovered/Resolved]
  - Haematemesis [Recovered/Resolved]
  - Off label use [Recovering/Resolving]
  - Acute hepatic failure [Recovered/Resolved]
  - Renal failure acute [Recovered/Resolved]
  - Accidental overdose [Unknown]
  - Toxicity to various agents [Recovered/Resolved]
